FAERS Safety Report 9399747 (Version 1)
Quarter: 2013Q3

REPORT INFORMATION
  Report Type: Spontaneous
  Country: GB (occurrence: GB)
  Receive Date: 20130715
  Receipt Date: 20130715
  Transmission Date: 20140515
  Serious: Yes (Other)
  Sender: FDA-Public Use
  Company Number: GB-MPIJNJ-2013-03524

PATIENT
  Sex: 0

DRUGS (10)
  1. VELCADE [Suspect]
     Indication: PLASMA CELL MYELOMA
     Dosage: UNK
     Route: 065
     Dates: start: 20130114
  2. CYCLOPHOSPHAMIDE [Suspect]
     Indication: PLASMA CELL MYELOMA
     Dosage: UNK
     Route: 065
  3. DEXAMETHASONE [Suspect]
     Indication: PLASMA CELL MYELOMA
     Route: 065
  4. SEPTRIN [Suspect]
     Dosage: 480 MG, UNK
     Route: 065
     Dates: start: 20130114, end: 20130204
  5. ALLOPURINOL [Concomitant]
     Dosage: 300 MG, UNK
     Dates: start: 20130114
  6. METOCLOPRAMIDE [Concomitant]
     Dosage: UNK
     Dates: start: 20130114
  7. LANSOPRAZOLE [Concomitant]
     Dosage: 30 MG, UNK
     Dates: start: 20130114
  8. FLUCONAZOLE [Concomitant]
     Dosage: 50 MG, UNK
     Dates: start: 20130114
  9. ACICLOVIR [Concomitant]
     Dosage: 400 MG, UNK
     Dates: start: 20130114
  10. AZITHROMYCIN [Concomitant]
     Dosage: 125 MG, UNK
     Dates: start: 20130225

REACTIONS (4)
  - Bone marrow failure [Unknown]
  - Alanine aminotransferase increased [Recovered/Resolved]
  - Platelet count decreased [Recovered/Resolved]
  - Rash [Unknown]
